FAERS Safety Report 8227491-2 (Version None)
Quarter: 2012Q1

REPORT INFORMATION
  Report Type: 
  Country: None (occurrence: None)
  Receive Date: 20120322
  Receipt Date: 20120316
  Transmission Date: 20120608
  Serious: Yes (Death, Hospitalization)
  Sender: FDA-Public Use
  Company Number: KR-TEVA-2010006138

PATIENT
  Sex: Female

DRUGS (11)
  1. RABEPRAZOLE SODIUM [Concomitant]
     Dates: start: 20101021, end: 20101130
  2. EMEDASTINE [Concomitant]
     Dates: start: 20101111, end: 20101120
  3. TREANDA [Suspect]
     Indication: DIFFUSE LARGE B-CELL LYMPHOMA REFRACTORY
     Route: 042
     Dates: start: 20101027, end: 20101028
  4. RANITIDINE HCL [Suspect]
     Indication: COUGH
     Dates: start: 20101104, end: 20101122
  5. MEGESTROL ACETATE [Concomitant]
     Dates: start: 20100805
  6. GLIMEPIRIDE [Concomitant]
     Dates: start: 20100903
  7. ASPIRIN [Concomitant]
     Dates: start: 20100903
  8. LEVOTUSS [Suspect]
     Indication: COUGH
     Dates: start: 20101116, end: 20101122
  9. RITUXIMAB [Concomitant]
     Indication: DIFFUSE LARGE B-CELL LYMPHOMA REFRACTORY
  10. METFORMIN HCL [Concomitant]
     Dates: start: 20100903
  11. BANAN [Suspect]
     Indication: COUGH
     Dates: start: 20101104, end: 20101122

REACTIONS (3)
  - THROMBOCYTOPENIA [None]
  - NEUTROPHIL COUNT [None]
  - COUGH [None]
